FAERS Safety Report 20189101 (Version 1)
Quarter: 2021Q4

REPORT INFORMATION
  Report Type: Spontaneous
  Country: US (occurrence: None)
  Receive Date: 20211215
  Receipt Date: 20211215
  Transmission Date: 20220303
  Serious: No
  Sender: FDA-Public Use
  Company Number: None

PATIENT
  Age: 53 Year
  Sex: Female

DRUGS (1)
  1. ENBREL [Suspect]
     Active Substance: ETANERCEPT
     Indication: Spondyloarthropathy
     Dosage: FREQUENCY : WEEKLY;?
     Route: 058
     Dates: start: 202104

REACTIONS (3)
  - Fatigue [None]
  - Therapy interrupted [None]
  - Infection [None]
